FAERS Safety Report 18418511 (Version 1)
Quarter: 2020Q4

REPORT INFORMATION
  Report Type: Spontaneous
  Country: US (occurrence: US)
  Receive Date: 20201023
  Receipt Date: 20201023
  Transmission Date: 20210114
  Serious: No
  Sender: FDA-Public Use
  Company Number: US-ASTRAZENECA-2020SF27465

PATIENT
  Sex: Female
  Weight: 40.8 kg

DRUGS (8)
  1. PULMICORT FLEXHALER [Suspect]
     Active Substance: BUDESONIDE
     Indication: CHRONIC OBSTRUCTIVE PULMONARY DISEASE
     Route: 055
     Dates: start: 20200922
  2. PULMICORT FLEXHALER [Suspect]
     Active Substance: BUDESONIDE
     Indication: PULMONARY CONGESTION
     Route: 055
     Dates: start: 20200922
  3. VITAMIN D3 [Concomitant]
     Active Substance: CHOLECALCIFEROL
  4. PULMICORT FLEXHALER [Suspect]
     Active Substance: BUDESONIDE
     Indication: EMPHYSEMA
     Route: 055
     Dates: start: 20200922
  5. VENTOLIN [Concomitant]
     Active Substance: ALBUTEROL SULFATE
  6. PULMICORT FLEXHALER [Suspect]
     Active Substance: BUDESONIDE
     Indication: LUNG DISORDER
     Route: 055
     Dates: start: 20200922
  7. VITAMIN C [Concomitant]
     Active Substance: ASCORBIC ACID
  8. LEVOFLOXACIN. [Concomitant]
     Active Substance: LEVOFLOXACIN
     Dosage: 750MG I GUSHED OUT MY BREAKFAST, MY DINNER

REACTIONS (6)
  - Malaise [Unknown]
  - Wrong technique in device usage process [Unknown]
  - Product use issue [Unknown]
  - Fatigue [Unknown]
  - Incorrect dose administered by device [Unknown]
  - Pain [Unknown]
